FAERS Safety Report 7384937-X (Version None)
Quarter: 2011Q1

REPORT INFORMATION
  Report Type: 
  Country: None (occurrence: None)
  Receive Date: 20110330
  Receipt Date: 20110325
  Transmission Date: 20110831
  Serious: Yes (Hospitalization)
  Sender: FDA-Public Use
  Company Number: US-CEPHALON-2011001444

PATIENT
  Sex: Male
  Weight: 86 kg

DRUGS (3)
  1. VELCADE [Suspect]
     Dates: start: 20110223, end: 20110308
  2. TREANDA [Suspect]
     Route: 042
     Dates: start: 20110223, end: 20110224
  3. RITUXAN [Suspect]
     Dates: start: 20110223, end: 20110308

REACTIONS (3)
  - INSOMNIA [None]
  - ATRIAL FIBRILLATION [None]
  - CONFUSIONAL STATE [None]
